FAERS Safety Report 25547327 (Version 3)
Quarter: 2025Q3

REPORT INFORMATION
  Report Type: Spontaneous
  Country: EU (occurrence: EU)
  Receive Date: 20250714
  Receipt Date: 20250808
  Transmission Date: 20251020
  Serious: Yes (Hospitalization, Other)
  Sender: AUROBINDO
  Company Number: EU-ZENTIVA-2025-ZT-039368

PATIENT
  Age: 85 Year
  Sex: Female

DRUGS (5)
  1. RIVAROXABAN [Suspect]
     Active Substance: RIVAROXABAN
     Indication: Deep vein thrombosis
     Route: 048
  2. NAPROXEN [Suspect]
     Active Substance: NAPROXEN
     Indication: Product used for unknown indication
     Dosage: UNK, ONCE A DAY
     Route: 048
  3. NAPROXEN [Suspect]
     Active Substance: NAPROXEN
     Dosage: UNK, TWO TIMES A DAY
     Route: 048
  4. DICLOFENAC [Suspect]
     Active Substance: DICLOFENAC
     Indication: Product used for unknown indication
     Route: 030
  5. BETAMETHASONE [Suspect]
     Active Substance: BETAMETHASONE
     Indication: Product used for unknown indication
     Route: 065

REACTIONS (6)
  - Gastrointestinal haemorrhage [Unknown]
  - Haemorrhoidal haemorrhage [Unknown]
  - Iron deficiency anaemia [Unknown]
  - Overdose [Unknown]
  - Rectal haemorrhage [Unknown]
  - Iatrogenic injury [Unknown]
